FAERS Safety Report 12511591 (Version 1)
Quarter: 2016Q2

REPORT INFORMATION
  Report Type: Spontaneous
  Country: US (occurrence: US)
  Receive Date: 20160630
  Receipt Date: 20160630
  Transmission Date: 20160815
  Serious: Yes (Hospitalization)
  Sender: FDA-Public Use
  Company Number: US-BEH-2016070598

PATIENT
  Sex: Male
  Weight: 80.27 kg

DRUGS (31)
  1. TAMSULOSIN [Concomitant]
     Active Substance: TAMSULOSIN
  2. BUMETANIDE. [Concomitant]
     Active Substance: BUMETANIDE
  3. PLAVIX [Concomitant]
     Active Substance: CLOPIDOGREL BISULFATE
  4. CRESTOR [Concomitant]
     Active Substance: ROSUVASTATIN CALCIUM
  5. SYMBICORT [Concomitant]
     Active Substance: BUDESONIDE\FORMOTEROL FUMARATE DIHYDRATE
  6. LASIX [Concomitant]
     Active Substance: FUROSEMIDE
  7. LMX                                /00033401/ [Concomitant]
  8. PAXIL [Concomitant]
     Active Substance: PAROXETINE HYDROCHLORIDE
  9. DUONEB [Concomitant]
     Active Substance: ALBUTEROL SULFATE\IPRATROPIUM BROMIDE
  10. LYRICA [Concomitant]
     Active Substance: PREGABALIN
  11. PANTOPRAZOLE [Concomitant]
     Active Substance: PANTOPRAZOLE SODIUM
  12. AZELASTINE [Concomitant]
     Active Substance: AZELASTINE
  13. CYMBALTA [Concomitant]
     Active Substance: DULOXETINE HYDROCHLORIDE
  14. DIPHENHYDRAMINE. [Concomitant]
     Active Substance: DIPHENHYDRAMINE
  15. LIDOCAINE/PRILOCAINE [Concomitant]
     Active Substance: LIDOCAINE\PRILOCAINE
  16. POTASSIUM [Concomitant]
     Active Substance: POTASSIUM
  17. MIRALAX [Concomitant]
     Active Substance: POLYETHYLENE GLYCOL 3350
  18. MULTIVITAMIN                       /00097801/ [Concomitant]
     Active Substance: VITAMINS
  19. VITAMIN D3 [Concomitant]
     Active Substance: CHOLECALCIFEROL
  20. MORPHINE [Concomitant]
     Active Substance: MORPHINE
  21. HIZENTRA [Suspect]
     Active Substance: HUMAN IMMUNOGLOBULIN G
     Indication: IMMUNODEFICIENCY
     Dosage: 12 G, UNK
     Route: 058
     Dates: start: 20120125
  22. FISH OIL [Concomitant]
     Active Substance: FISH OIL
  23. MINOXIDIL. [Concomitant]
     Active Substance: MINOXIDIL
  24. LISINOPRIL. [Concomitant]
     Active Substance: LISINOPRIL
  25. SINGULAIR [Concomitant]
     Active Substance: MONTELUKAST SODIUM
  26. EPIPEN [Concomitant]
     Active Substance: EPINEPHRINE
  27. ACETAMINOPHEN. [Concomitant]
     Active Substance: ACETAMINOPHEN
  28. HIZENTRA [Suspect]
     Active Substance: HUMAN IMMUNOGLOBULIN G
     Dosage: UNK
     Route: 058
  29. OXYCODONE [Concomitant]
     Active Substance: OXYCODONE
  30. AMITIZA [Concomitant]
     Active Substance: LUBIPROSTONE
  31. ASPIRIN. [Concomitant]
     Active Substance: ASPIRIN

REACTIONS (1)
  - Renal failure [Unknown]
